FAERS Safety Report 19537604 (Version 2)
Quarter: 2021Q3

REPORT INFORMATION
  Report Type: Report from Study
  Country: DE (occurrence: DE)
  Receive Date: 20210713
  Receipt Date: 20210720
  Transmission Date: 20211014
  Serious: Yes (Death, Other)
  Sender: FDA-Public Use
  Company Number: DE-PFIZER INC-2021873214

PATIENT

DRUGS (5)
  1. CARBOPLATIN. [Suspect]
     Active Substance: CARBOPLATIN
     Indication: NON-SMALL CELL LUNG CANCER STAGE III
     Dosage: 300 MG/M2, CYCLIC (DAYS 1, 22) (TWO INITIAL CYCLES)
  2. ETOPOSIDE. [Suspect]
     Active Substance: ETOPOSIDE
     Indication: NON-SMALL CELL LUNG CANCER STAGE III
     Dosage: 100 MG/M2, CYCLIC (DAYS 1,3,5,22,24,26) (TWO INITIAL CYCLES)
  3. VINDESINE SULFATE [Suspect]
     Active Substance: VINDESINE SULFATE
     Indication: NON-SMALL CELL LUNG CANCER STAGE III
     Dosage: 3 MG, CYCLIC (DAYS 43,50,57)
  4. CARBOPLATIN. [Suspect]
     Active Substance: CARBOPLATIN
     Dosage: 100 MG/M2, CYCLIC (DAYS 43,50,57)
  5. IFOSFAMIDE. [Suspect]
     Active Substance: IFOSFAMIDE
     Indication: NON-SMALL CELL LUNG CANCER STAGE III
     Dosage: 1500 MG/M2, CYCLIC (DAYS 1,3,5,22,24,26) TWO INITIAL CYCLES

REACTIONS (1)
  - Respiratory failure [Fatal]
